FAERS Safety Report 5077783-3 (Version None)
Quarter: 2006Q3

REPORT INFORMATION
  Report Type: 
  Country: None (occurrence: None)
  Receive Date: 20060807
  Receipt Date: 20060730
  Transmission Date: 20061208
  Serious: Yes (Other)
  Sender: FDA-Public Use
  Company Number: 2006-07-1989

PATIENT
  Age: 58 Year
  Sex: Female
  Weight: 81.6475 kg

DRUGS (8)
  1. PEG-INTRON [Suspect]
     Indication: HEPATITIS C
     Dosage: SUBCUTANEOUS
     Route: 058
     Dates: start: 20060505
  2. RIBAVIRIN [Suspect]
     Indication: HEPATITIS C
     Dosage: ORAL
     Route: 048
     Dates: start: 20060505
  3. OPHTHALMIC PREPARATION (NOS) [Suspect]
     Indication: CONJUNCTIVITIS
     Dosage: EYE
     Dates: start: 20060701
  4. PREDNISONE [Suspect]
     Indication: PNEUMONIA
     Dates: start: 20060701
  5. LASIX [Concomitant]
  6. LUNESTA (ESZOPICLONE) TABLETS [Concomitant]
  7. METHADONE HYDROCHLORIDE TABLETS [Concomitant]
  8. PROVIGIL [Concomitant]

REACTIONS (15)
  - AGEUSIA [None]
  - CONJUNCTIVITIS [None]
  - DECREASED APPETITE [None]
  - DEHYDRATION [None]
  - DEPRESSION [None]
  - DYSGEUSIA [None]
  - EYELID OEDEMA [None]
  - HAEMOGLOBIN DECREASED [None]
  - HYPERSENSITIVITY [None]
  - MANIA [None]
  - NAUSEA [None]
  - PNEUMONIA [None]
  - SELF-MEDICATION [None]
  - SWELLING FACE [None]
  - WEIGHT DECREASED [None]
